FAERS Safety Report 25097140 (Version 2)
Quarter: 2025Q1

REPORT INFORMATION
  Report Type: Report from Study
  Country: US (occurrence: US)
  Receive Date: 20250319
  Receipt Date: 20250327
  Transmission Date: 20250409
  Serious: No
  Sender: ABBVIE
  Company Number: US-ABBVIE-6186678

PATIENT
  Age: 70 Year
  Sex: Male

DRUGS (2)
  1. SKYRIZI [Suspect]
     Active Substance: RISANKIZUMAB-RZAA
     Indication: Crohn^s disease
     Route: 058
     Dates: start: 202501
  2. SKYRIZI [Suspect]
     Active Substance: RISANKIZUMAB-RZAA
     Indication: Crohn^s disease
     Route: 042
     Dates: start: 2024, end: 2024

REACTIONS (6)
  - Injection site bruising [Recovering/Resolving]
  - Injection site haemorrhage [Unknown]
  - Injection site erythema [Recovering/Resolving]
  - Injection site swelling [Unknown]
  - Device issue [Not Recovered/Not Resolved]
  - Injection site papule [Recovering/Resolving]

NARRATIVE: CASE EVENT DATE: 20250101
